FAERS Safety Report 25799797 (Version 1)
Quarter: 2025Q3

REPORT INFORMATION
  Report Type: Spontaneous
  Country: US (occurrence: US)
  Receive Date: 20250914
  Receipt Date: 20250914
  Transmission Date: 20251021
  Serious: No
  Sender: SANOFI AVENTIS
  Company Number: US-SA-2025SA271207

PATIENT
  Sex: Female

DRUGS (7)
  1. DUPIXENT [Suspect]
     Active Substance: DUPILUMAB
     Indication: Chronic kidney disease
     Dosage: 200 MG, QOW
     Route: 058
  2. ALBUTEROL SULFATE [Concomitant]
     Active Substance: ALBUTEROL SULFATE
  3. ELIQUIS [Concomitant]
     Active Substance: APIXABAN
  4. METOPROLOL SUCCINATE [Concomitant]
     Active Substance: METOPROLOL SUCCINATE
  5. POTASSIUM CHLORIDE [Concomitant]
     Active Substance: POTASSIUM CHLORIDE
  6. ROSUVASTATIN [Concomitant]
     Active Substance: ROSUVASTATIN
  7. TORSEMIDE [Concomitant]
     Active Substance: TORSEMIDE

REACTIONS (3)
  - Hypersensitivity [Recovered/Resolved]
  - Skin swelling [Recovered/Resolved]
  - Product use in unapproved indication [Unknown]
